FAERS Safety Report 7646389-1 (Version None)
Quarter: 2011Q3

REPORT INFORMATION
  Report Type: 
  Country: None (occurrence: None)
  Receive Date: 20110801
  Receipt Date: 20110725
  Transmission Date: 20111222
  Serious: Yes (Hospitalization)
  Sender: FDA-Public Use
  Company Number: US-JNJFOC-20110711129

PATIENT
  Sex: Male
  Weight: 92.08 kg

DRUGS (8)
  1. DURAGESIC-100 [Suspect]
     Route: 062
     Dates: start: 20090101, end: 20100101
  2. WELLBUTRIN [Concomitant]
     Indication: ANTIDEPRESSANT THERAPY
     Route: 048
  3. LAMICTAL [Concomitant]
     Indication: CONVULSION PROPHYLAXIS
     Route: 048
  4. PREVACID [Concomitant]
     Indication: PROPHYLAXIS
     Route: 048
  5. DEMEROL [Concomitant]
     Indication: BREAKTHROUGH PAIN
     Route: 048
  6. DURAGESIC-100 [Suspect]
     Indication: PAIN
     Route: 062
     Dates: start: 20110628
  7. UNSPECIFIED FENTNYL TRANSDERMAL SYSTEN [Suspect]
     Indication: PAIN
     Route: 062
     Dates: start: 20100101, end: 20110627
  8. WELLBUTRIN [Concomitant]
     Route: 048

REACTIONS (3)
  - MUSCULOSKELETAL DISORDER [None]
  - BODY TEMPERATURE INCREASED [None]
  - HYPERHIDROSIS [None]
